FAERS Safety Report 16946813 (Version 1)
Quarter: 2019Q4

REPORT INFORMATION
  Report Type: Spontaneous
  Country: SI (occurrence: SI)
  Receive Date: 20191022
  Receipt Date: 20191022
  Transmission Date: 20200122
  Serious: Yes (Other)
  Sender: FDA-Public Use
  Company Number: SI-ASTRAZENECA-2019SF46413

PATIENT
  Age: 41 Year
  Sex: Male

DRUGS (18)
  1. TAVEGYL [Concomitant]
     Active Substance: CLEMASTINE FUMARATE
     Dosage: DF: AMPOULE
     Route: 042
     Dates: start: 20181117
  2. ASPIRIN. [Concomitant]
     Active Substance: ASPIRIN
     Indication: ANTIPLATELET THERAPY
  3. EPIPEN [Concomitant]
     Active Substance: EPINEPHRINE
     Indication: HYPERSENSITIVITY
     Dosage: 300 MCG
     Dates: start: 20181117
  4. MEDROL [Concomitant]
     Active Substance: METHYLPREDNISOLONE
     Indication: HYPERSENSITIVITY
     Dosage: 32 MG
     Route: 048
     Dates: start: 20181117
  5. HEPARIN [Concomitant]
     Active Substance: HEPARIN SODIUM
     Dosage: 5,000 IU
     Route: 042
     Dates: start: 20181117
  6. SALINE [Concomitant]
     Active Substance: SODIUM CHLORIDE
     Route: 042
  7. AERIUS [Concomitant]
     Indication: HYPERSENSITIVITY
     Route: 048
     Dates: start: 20181117
  8. SORVASTA [Concomitant]
     Active Substance: ROSUVASTATIN CALCIUM
  9. PRENESSA [Concomitant]
     Active Substance: PERINDOPRIL
  10. DASSELTA [Concomitant]
     Active Substance: DESLORATADINE
  11. NITROGLYCERINE SPRAY [Concomitant]
     Dosage: DF: PUFF
     Route: 060
     Dates: start: 20181117
  12. BERODUAL [Concomitant]
     Active Substance: FENOTEROL HYDROBROMIDE\IPRATROPIUM BROMIDE
     Dosage: DF: PUFF2.0DF AS REQUIRED
  13. MORPHINE [Concomitant]
     Active Substance: MORPHINE
     Dosage: 2 MG
     Route: 042
     Dates: start: 20181117
  14. BRILIQUE [Suspect]
     Active Substance: TICAGRELOR
     Indication: KOUNIS SYNDROME
     Dosage: 180 MG
     Route: 048
     Dates: start: 20181117
  15. TORECAN [Concomitant]
     Active Substance: THIETHYLPERAZINE MALATE
     Dosage: AMPOULE
     Route: 042
     Dates: start: 20181117
  16. OXYGEN. [Concomitant]
     Active Substance: OXYGEN
     Dosage: 2 L
     Route: 045
  17. RANITIDINE. [Concomitant]
     Active Substance: RANITIDINE
     Dosage: DF: AMPULE
     Route: 042
     Dates: start: 20181117
  18. SOLU-CORTEF [Concomitant]
     Active Substance: HYDROCORTISONE SODIUM SUCCINATE
     Dosage: 100 MG
     Route: 042
     Dates: start: 20181117

REACTIONS (3)
  - Ventricular tachycardia [Recovered/Resolved]
  - Myocardial infarction [Unknown]
  - Anaphylactic reaction [Unknown]

NARRATIVE: CASE EVENT DATE: 20181118
